FAERS Safety Report 6316098-X (Version None)
Quarter: 2009Q3

REPORT INFORMATION
  Report Type: 
  Country: None (occurrence: None)
  Receive Date: 20090820
  Receipt Date: 20090813
  Transmission Date: 20100115
  Serious: Yes (Other)
  Sender: FDA-Public Use
  Company Number: PHHY2009BE24174

PATIENT
  Age: 80 Year
  Sex: Female

DRUGS (1)
  1. ACLASTA [Suspect]
     Indication: OSTEOPOROSIS
     Dosage: 5 MG, UNK
     Route: 042
     Dates: start: 20090501

REACTIONS (6)
  - ARTHRALGIA [None]
  - DIPLOPIA [None]
  - EYELID PTOSIS [None]
  - FACIAL PAIN [None]
  - JOINT SWELLING [None]
  - OPHTHALMOPLEGIA [None]
